FAERS Safety Report 16206445 (Version 1)
Quarter: 2019Q2

REPORT INFORMATION
  Report Type: Spontaneous
  Country: US (occurrence: US)
  Receive Date: 20190416
  Receipt Date: 20190416
  Transmission Date: 20190711
  Serious: Yes (Hospitalization)
  Sender: FDA-Public Use
  Company Number: None

PATIENT
  Sex: Female

DRUGS (10)
  1. CALCIUM 600 TAB [Concomitant]
  2. FISH OIL CAP 1200MG [Concomitant]
  3. ASPIRIN CHW 81MG [Concomitant]
  4. MULTI-VITAMN TAB [Concomitant]
  5. GLUCOS/CHOND CAP 500-400 [Concomitant]
  6. CELEXA TAB 40MG [Concomitant]
  7. VITAMIN D3 TAB 1000UNIT [Concomitant]
  8. IBRANCE [Suspect]
     Active Substance: PALBOCICLIB
     Indication: BREAST CANCER FEMALE
     Route: 048
     Dates: start: 20171003
  9. LETROZOLE TAB 2.5MG [Concomitant]
     Active Substance: LETROZOLE
  10. TIMOLOL MAL SOL 0.5% OP [Concomitant]

REACTIONS (2)
  - Product dose omission [None]
  - Fatigue [None]
